FAERS Safety Report 7978469-5 (Version None)
Quarter: 2011Q4

REPORT INFORMATION
  Report Type: 
  Country: None (occurrence: None)
  Receive Date: 20111214
  Receipt Date: 20111202
  Transmission Date: 20120403
  Serious: Yes (Hospitalization)
  Sender: FDA-Public Use
  Company Number: DE-ELI_LILLY_AND_COMPANY-DE201112000893

PATIENT
  Age: 42 Year
  Sex: Female

DRUGS (7)
  1. CITALOPRAM [Concomitant]
     Dosage: 20 MG, QD
     Route: 048
     Dates: start: 20110609, end: 20110613
  2. RAMIPRIL [Concomitant]
     Route: 048
  3. CITALOPRAM [Concomitant]
     Dosage: 80 MG, QD
     Route: 048
     Dates: start: 20090101, end: 20110607
  4. CYMBALTA [Suspect]
     Dosage: 60 MG, QD
     Route: 048
     Dates: start: 20110609
  5. CYMBALTA [Suspect]
     Dosage: 30 MG, UNK
     Route: 048
     Dates: start: 20110608
  6. MIRTAZAPINE [Concomitant]
     Dosage: 7.5 MG, UNK
     Route: 048
     Dates: start: 20110608, end: 20110613
  7. CITALOPRAM [Concomitant]
     Dosage: 40 MG, QD
     Route: 048
     Dates: start: 20110608

REACTIONS (2)
  - LIPOEDEMA [None]
  - OEDEMA PERIPHERAL [None]
